FAERS Safety Report 9321415 (Version 1)
Quarter: 2013Q2

REPORT INFORMATION
  Report Type: Spontaneous
  Country: DE (occurrence: DE)
  Receive Date: 20130531
  Receipt Date: 20130531
  Transmission Date: 20140414
  Serious: Yes (Other)
  Sender: FDA-Public Use
  Company Number: DE-PFIZER INC-2013162732

PATIENT
  Sex: Male

DRUGS (2)
  1. TOVIAZ [Suspect]
     Indication: URINARY INCONTINENCE
     Dosage: 4 MG, UNK
  2. TOVIAZ [Suspect]
     Indication: BENIGN PROSTATIC HYPERPLASIA

REACTIONS (8)
  - Dementia [Unknown]
  - Visual impairment [Unknown]
  - Off label use [Unknown]
  - Pollakiuria [Unknown]
  - Drug ineffective for unapproved indication [Unknown]
  - Dry mouth [Unknown]
  - Dizziness [Unknown]
  - Headache [Unknown]
